FAERS Safety Report 13780909 (Version 2)
Quarter: 2017Q3

REPORT INFORMATION
  Report Type: Spontaneous
  Country: AT (occurrence: AT)
  Receive Date: 20170724
  Receipt Date: 20170801
  Transmission Date: 20171127
  Serious: Yes (Other)
  Sender: FDA-Public Use
  Company Number: AT-CONCORDIA PHARMACEUTICALS INC.-GSH201707-004304

PATIENT
  Age: 26 Year
  Sex: Female

DRUGS (2)
  1. AZATHIOPRINE. [Concomitant]
     Active Substance: AZATHIOPRINE
  2. HYDROXYCHLOROQUINE [Suspect]
     Active Substance: HYDROXYCHLOROQUINE
     Indication: SYSTEMIC LUPUS ERYTHEMATOSUS
     Route: 065

REACTIONS (6)
  - Hypocomplementaemia [Recovering/Resolving]
  - Histology abnormal [Recovering/Resolving]
  - Hypoalbuminaemia [Recovering/Resolving]
  - Double stranded DNA antibody positive [Recovering/Resolving]
  - Proteinuria [Recovering/Resolving]
  - Phospholipidosis [Recovering/Resolving]
